FAERS Safety Report 25215302 (Version 1)
Quarter: 2025Q2

REPORT INFORMATION
  Report Type: Other
  Country: JP (occurrence: JP)
  Receive Date: 20250418
  Receipt Date: 20250418
  Transmission Date: 20250716
  Serious: Yes (Hospitalization, Other)
  Sender: EMD SERONO INC
  Company Number: JP-Merck Healthcare KGaA-2025018525

PATIENT
  Age: 91 Year
  Sex: Male

DRUGS (3)
  1. METGLUCO [Suspect]
     Active Substance: METFORMIN HYDROCHLORIDE
     Indication: Diabetes mellitus
  2. GLICLAZIDE [Suspect]
     Active Substance: GLICLAZIDE
     Indication: Diabetes mellitus
  3. VALACYCLOVIR HYDROCHLORIDE [Suspect]
     Active Substance: VALACYCLOVIR HYDROCHLORIDE
     Indication: Herpes zoster

REACTIONS (8)
  - Toxicity to various agents [Unknown]
  - Blood creatinine increased [Unknown]
  - Dehydration [Unknown]
  - Toxic encephalopathy [Unknown]
  - Fluid intake reduced [Recovered/Resolved]
  - Fall [Recovered/Resolved]
  - Decreased appetite [Unknown]
  - Lactic acidosis [Recovered/Resolved]
